FAERS Safety Report 23524788 (Version 1)
Quarter: 2024Q1

REPORT INFORMATION
  Report Type: 
  Country: None (occurrence: None)
  Receive Date: 20240215
  Receipt Date: 20240215
  Transmission Date: 20240410
  Serious: No
  Sender: FDA-Public Use
  Company Number: DE-ROCHE-3171324

PATIENT
  Weight: 67 kg

DRUGS (2)
  1. OCREVUS [Suspect]
     Active Substance: OCRELIZUMAB
     Dates: start: 20210831, end: 20210914
  2. OCREVUS [Suspect]
     Active Substance: OCRELIZUMAB
     Dates: start: 20220222

REACTIONS (1)
  - Breast cancer female [None]
